FAERS Safety Report 8857618 (Version 1)
Quarter: 2012Q4

REPORT INFORMATION
  Report Type: 
  Country: CA (occurrence: CA)
  Receive Date: 20121024
  Receipt Date: 20121024
  Transmission Date: 20130627
  Serious: Yes (Hospitalization)
  Sender: FDA-Public Use
  Company Number: CA-B.I. PHARMACEUTICALS,INC./RIDGEFIELD-2012-CN-02153CN

PATIENT
  Age: 89 Year

DRUGS (1)
  1. PRADAX [Suspect]
     Dosage: 220 mg

REACTIONS (3)
  - Fall [Unknown]
  - Blood glucose [Unknown]
  - Chromaturia [Unknown]
